FAERS Safety Report 6570498-1 (Version None)
Quarter: 2010Q1

REPORT INFORMATION
  Report Type: 
  Country: None (occurrence: None)
  Receive Date: 20100204
  Receipt Date: 20091019
  Transmission Date: 20100710
  Serious: Yes (Other)
  Sender: FDA-Public Use
  Company Number: A0812399A

PATIENT

DRUGS (1)
  1. ARIXTRA [Suspect]
     Indication: POSTOPERATIVE CARE
     Route: 058

REACTIONS (5)
  - ECCHYMOSIS [None]
  - HAEMATOMA [None]
  - HAEMOGLOBIN DECREASED [None]
  - HAEMORRHAGE [None]
  - INCISION SITE HAEMORRHAGE [None]
